FAERS Safety Report 22061708 (Version 1)
Quarter: 2023Q1

REPORT INFORMATION
  Report Type: Report from Study
  Country: ES (occurrence: ES)
  Receive Date: 20230304
  Receipt Date: 20230304
  Transmission Date: 20230418
  Serious: Yes (Other)
  Sender: FDA-Public Use
  Company Number: ES-ABBVIE-4206993

PATIENT
  Sex: Male
  Weight: 72 kg

DRUGS (3)
  1. CARBIDOPA\LEVODOPA [Suspect]
     Active Substance: CARBIDOPA\LEVODOPA
     Indication: Parkinson^s disease
     Route: 050
     Dates: start: 20190606, end: 20221117
  2. CARBIDOPA\LEVODOPA [Suspect]
     Active Substance: CARBIDOPA\LEVODOPA
     Dosage: DECREASE THE DOSAGE: MORNING DOSE 4.5 ML, CONTINUOUS DOSE 4.2 ML/H.
     Route: 050
     Dates: start: 20221117, end: 202212
  3. CARBIDOPA\LEVODOPA [Suspect]
     Active Substance: CARBIDOPA\LEVODOPA
     Dosage: FINAL DOSE ADJUSTMENT
     Route: 050
     Dates: start: 202212

REACTIONS (10)
  - Cardiomegaly [Not Recovered/Not Resolved]
  - Freezing phenomenon [Unknown]
  - Unevaluable event [Unknown]
  - Dyskinesia [Unknown]
  - Cardiac index [Not Recovered/Not Resolved]
  - Parkinson^s disease [Unknown]
  - Aortic aneurysm [Not Recovered/Not Resolved]
  - Fatigue [Not Recovered/Not Resolved]
  - Dyspnoea [Not Recovered/Not Resolved]
  - On and off phenomenon [Unknown]

NARRATIVE: CASE EVENT DATE: 20220101
